FAERS Safety Report 4911415-7 (Version None)
Quarter: 2006Q1

REPORT INFORMATION
  Report Type: 
  Country: None (occurrence: None)
  Receive Date: 20060213
  Receipt Date: 20060201
  Transmission Date: 20060701
  Serious: Yes (Other)
  Sender: FDA-Public Use
  Company Number: 2006016559

PATIENT
  Age: 22 Year
  Sex: Male

DRUGS (3)
  1. PHENYTOIN SODIUM [Suspect]
     Indication: CONVULSION
     Dosage: 100 MG, ORAL
     Route: 048
  2. CLONAZEPAM [Suspect]
     Indication: ILL-DEFINED DISORDER
     Dosage: 0.5 MG
  3. KEPPRA [Suspect]
     Indication: CONVULSION
     Dosage: 500 MG

REACTIONS (2)
  - PHYSICAL ASSAULT [None]
  - PSYCHOTIC DISORDER [None]
